FAERS Safety Report 22088611 (Version 1)
Quarter: 2023Q1

REPORT INFORMATION
  Report Type: Report from Study
  Country: JP (occurrence: JP)
  Receive Date: 20230313
  Receipt Date: 20230313
  Transmission Date: 20230418
  Serious: Yes (Other)
  Sender: FDA-Public Use
  Company Number: JP-VIIV HEALTHCARE LIMITED-JP2023JPN036936

PATIENT

DRUGS (10)
  1. DOLUTEGRAVIR [Suspect]
     Active Substance: DOLUTEGRAVIR
     Indication: HIV infection
     Dosage: 50 MG, 1D
     Dates: start: 20170130, end: 20220611
  2. DESCOVY [Suspect]
     Active Substance: EMTRICITABINE\TENOFOVIR ALAFENAMIDE FUMARATE
     Indication: HIV infection
     Dosage: 1 DF, 1D
     Dates: start: 20170130
  3. PIFELTRO [Concomitant]
     Active Substance: DORAVIRINE
     Indication: HIV infection
     Dosage: 100 MG, 1D
     Dates: start: 20220612
  4. TRUVADA [Concomitant]
     Active Substance: EMTRICITABINE\TENOFOVIR DISOPROXIL FUMARATE
     Indication: HIV infection
  5. EFAVIRENZ [Concomitant]
     Active Substance: EFAVIRENZ
  6. LIDOCAINE\TRIBENOSIDE [Concomitant]
     Active Substance: LIDOCAINE\TRIBENOSIDE
     Dosage: UNK
     Dates: start: 20170916
  7. ALLEGRA [Concomitant]
     Active Substance: FEXOFENADINE HYDROCHLORIDE
     Dosage: UNK
     Dates: start: 20190218, end: 20190417
  8. ALLEGRA [Concomitant]
     Active Substance: FEXOFENADINE HYDROCHLORIDE
     Dosage: UNK
     Dates: start: 20220325, end: 20220623
  9. PATANOL OPHTHALMIC [Concomitant]
     Dosage: UNK
     Dates: start: 20190218, end: 20190417
  10. PATANOL OPHTHALMIC [Concomitant]
     Dosage: UNK
     Dates: start: 20220325, end: 20220623

REACTIONS (2)
  - Syphilis [Recovering/Resolving]
  - Insomnia [Recovering/Resolving]

NARRATIVE: CASE EVENT DATE: 20180829
